FAERS Safety Report 7788854-2 (Version None)
Quarter: 2011Q3

REPORT INFORMATION
  Report Type: 
  Country: None (occurrence: None)
  Receive Date: 20110930
  Receipt Date: 20110928
  Transmission Date: 20111222
  Serious: Yes (Death, Hospitalization, Other)
  Sender: FDA-Public Use
  Company Number: US-BAYER-2011-076803

PATIENT
  Age: 67 Year
  Sex: Male

DRUGS (6)
  1. OXYCODONE [Concomitant]
     Dosage: 5 MG
  2. PROCHLORPERAZ [Concomitant]
     Dosage: 5 MG
  3. LORAZEPAM [Concomitant]
     Dosage: 0.5 MG
  4. SORAFENIB (RAF KINASE INHIBITOR) [Suspect]
     Indication: HEPATIC NEOPLASM MALIGNANT
     Dosage: 400 MG, BID
     Route: 048
     Dates: start: 20110818, end: 20110905
  5. ANXIOLYTICS [Concomitant]
  6. SORAFENIB (RAF KINASE INHIBITOR) [Suspect]
     Dosage: 200 MG, BID
     Route: 048
     Dates: start: 20110912

REACTIONS (10)
  - DEATH [None]
  - DECREASED APPETITE [None]
  - IRRITABILITY [None]
  - BLISTER [None]
  - DEHYDRATION [None]
  - NAUSEA [None]
  - RASH [None]
  - HYPOPHAGIA [None]
  - VOMITING [None]
  - OEDEMA PERIPHERAL [None]
